FAERS Safety Report 6103492-5 (Version None)
Quarter: 2009Q1

REPORT INFORMATION
  Report Type: 
  Country: None (occurrence: None)
  Receive Date: 20090302
  Receipt Date: 20090212
  Transmission Date: 20090719
  Serious: Yes (Death)
  Sender: FDA-Public Use
  Company Number: 1000004922

PATIENT
  Sex: Male

DRUGS (8)
  1. PROPRANOLOL ER 60 MG (PROPRANOLOL HYDROCHLORIDE) [Suspect]
     Dosage: ORAL
     Route: 048
  2. VERAPAMIL [Suspect]
     Dosage: ORAL
     Route: 048
  3. LITHIUM CARBONATE [Suspect]
     Dosage: ORAL
     Route: 048
  4. QUETIAPINE FUMARATE [Suspect]
     Dosage: ORAL
     Route: 048
  5. GLIPIZIDE [Suspect]
     Dosage: ORAL
     Route: 048
  6. CLONIDINE [Suspect]
     Dosage: ORAL
     Route: 048
  7. MODAFINIL [Suspect]
     Dosage: ORAL
     Route: 048
  8. PAROXETINE HCL [Suspect]
     Dosage: ORAL
     Route: 048

REACTIONS (3)
  - CARDIAC ARREST [None]
  - MULTIPLE DRUG OVERDOSE INTENTIONAL [None]
  - RESPIRATORY ARREST [None]
